FAERS Safety Report 6193323-X (Version None)
Quarter: 2009Q2

REPORT INFORMATION
  Report Type: 
  Country: None (occurrence: None)
  Receive Date: 20090513
  Receipt Date: 20090513
  Transmission Date: 20091009
  Serious: No
  Sender: FDA-Public Use
  Company Number: None

PATIENT
  Sex: Female
  Weight: 60.782 kg

DRUGS (2)
  1. BUPROPION HYDROCHLORIDE [Suspect]
     Indication: ANXIETY
     Dosage: ONE TABLET DAILY
     Dates: start: 20090121, end: 20090410
  2. BUPROPION HYDROCHLORIDE [Suspect]
     Indication: PANIC ATTACK
     Dosage: ONE TABLET DAILY
     Dates: start: 20090121, end: 20090410

REACTIONS (5)
  - ANXIETY [None]
  - FEELING ABNORMAL [None]
  - MOOD SWINGS [None]
  - NEGATIVE THOUGHTS [None]
  - PRODUCT QUALITY ISSUE [None]
